FAERS Safety Report 18110727 (Version 1)
Quarter: 2020Q3

REPORT INFORMATION
  Report Type: Spontaneous
  Country: US (occurrence: US)
  Receive Date: 20200805
  Receipt Date: 20200805
  Transmission Date: 20201103
  Serious: Yes (Other)
  Sender: FDA-Public Use
  Company Number: US-BEH-2020120854

PATIENT
  Sex: Male

DRUGS (4)
  1. HUMATE?P [Suspect]
     Active Substance: HUMAN COAGULATION FACTOR VIII/VON WILLEBRAND FACTOR COMPLEX
     Indication: FACTOR VIII DEFICIENCY
     Dosage: INFUSE 2500 F8 UNITS (2250?2750) SLOW IV PUSH EVERY MONDAY, WEDNESDAY, AND FRIDAY FOR PROPHYLAXIS AN
     Route: 042
     Dates: start: 201312
  2. HUMATE?P [Suspect]
     Active Substance: HUMAN COAGULATION FACTOR VIII/VON WILLEBRAND FACTOR COMPLEX
     Indication: FACTOR VIII DEFICIENCY
     Dosage: INFUSE 2500 F8 UNITS (2250?2750) SLOW IV PUSH EVERY MONDAY, WEDNESDAY, AND FRIDAY FOR PROPHYLAXIS AN
     Route: 042
     Dates: start: 201312
  3. HUMATE?P [Suspect]
     Active Substance: HUMAN COAGULATION FACTOR VIII/VON WILLEBRAND FACTOR COMPLEX
     Indication: PROPHYLAXIS
  4. HUMATE?P [Suspect]
     Active Substance: HUMAN COAGULATION FACTOR VIII/VON WILLEBRAND FACTOR COMPLEX
     Indication: PROPHYLAXIS

REACTIONS (1)
  - Haemarthrosis [Unknown]
